FAERS Safety Report 19829184 (Version 1)
Quarter: 2021Q3

REPORT INFORMATION
  Report Type: Spontaneous
  Country: DE (occurrence: DE)
  Receive Date: 20210914
  Receipt Date: 20210914
  Transmission Date: 20211014
  Serious: Yes (Congenital Anomaly, Other)
  Sender: FDA-Public Use
  Company Number: NVSC2021DE202360

PATIENT
  Age: 6 Month
  Sex: Female
  Weight: 3.63 kg

DRUGS (1)
  1. AMOXICILLIN. [Suspect]
     Active Substance: AMOXICILLIN
     Indication: FOETAL EXPOSURE DURING PREGNANCY
     Dosage: 2500 MG, QD
     Route: 064
     Dates: start: 20200612, end: 20200626

REACTIONS (2)
  - Talipes [Unknown]
  - Foetal exposure during pregnancy [Unknown]
